FAERS Safety Report 5545244-0 (Version None)
Quarter: 2007Q4

REPORT INFORMATION
  Report Type: 
  Country: None (occurrence: None)
  Receive Date: 20071121
  Receipt Date: 20070222
  Transmission Date: 20080405
  Serious: Yes (Hospitalization)
  Sender: FDA-Public Use
  Company Number: 2007-BP-02548BP

PATIENT
  Age: 72 Year
  Sex: Female

DRUGS (2)
  1. AGGRENOX [Suspect]
     Indication: CARDIOVASCULAR EVENT PROPHYLAXIS
     Dosage: (25MG/200MG), PO
     Route: 048
     Dates: start: 20070101
  2. HEPARIN [Concomitant]

REACTIONS (1)
  - THROMBOCYTOPENIA [None]
